FAERS Safety Report 6866718-6 (Version None)
Quarter: 2010Q3

REPORT INFORMATION
  Report Type: 
  Country: None (occurrence: None)
  Receive Date: 20100722
  Receipt Date: 20100714
  Transmission Date: 20110219
  Serious: Yes (Life-Threatening, Hospitalization, Other)
  Sender: FDA-Public Use
  Company Number: DE-ABBOTT-10P-062-0657672-00

PATIENT
  Sex: Female

DRUGS (16)
  1. HUMIRA [Suspect]
     Indication: RHEUMATOID ARTHRITIS
     Dates: start: 20060801, end: 20061101
  2. MTX [Concomitant]
     Indication: RHEUMATOID ARTHRITIS
     Dosage: WEEKLY
     Route: 048
     Dates: start: 20090701, end: 20100101
  3. MTX [Concomitant]
     Route: 048
     Dates: start: 20090101, end: 20090601
  4. MTX [Concomitant]
     Route: 048
     Dates: start: 19930301, end: 20020401
  5. MTX [Concomitant]
     Route: 048
     Dates: start: 20030501, end: 20070901
  6. MTX [Concomitant]
     Route: 048
     Dates: start: 20080401
  7. PREDNISOLON [Concomitant]
     Indication: PRODUCT USED FOR UNKNOWN INDICATION
     Dosage: EVERY MORNING
  8. HYDROMORPHONE HCL [Concomitant]
     Indication: PRODUCT USED FOR UNKNOWN INDICATION
     Dosage: EVERY MORNING
  9. DHC MUNDIPHARMA [Concomitant]
     Indication: PRODUCT USED FOR UNKNOWN INDICATION
  10. AMITRIPTYLINE HCL [Concomitant]
     Indication: PRODUCT USED FOR UNKNOWN INDICATION
     Dosage: EVERY NIGHT
  11. NOVONORM [Concomitant]
     Indication: PRODUCT USED FOR UNKNOWN INDICATION
  12. METOHEXAL [Concomitant]
     Indication: PRODUCT USED FOR UNKNOWN INDICATION
  13. ACLASTA [Concomitant]
     Indication: PRODUCT USED FOR UNKNOWN INDICATION
     Dosage: 2ND INFUSION IN JUN 2009
  14. FERROSANOL [Concomitant]
     Indication: PRODUCT USED FOR UNKNOWN INDICATION
  15. DURAGESIC-100 [Concomitant]
     Indication: PRODUCT USED FOR UNKNOWN INDICATION
     Dosage: LAST CHANGE 15 MAR 2010
     Route: 062
  16. ACTRAPID [Concomitant]
     Indication: PRODUCT USED FOR UNKNOWN INDICATION
     Dosage: ACCORDING TO LAB

REACTIONS (6)
  - ARTHRALGIA [None]
  - GASTRIC CANCER [None]
  - GASTRIC STENOSIS [None]
  - METASTASES TO LYMPH NODES [None]
  - MUSCULOSKELETAL STIFFNESS [None]
  - POST PROCEDURAL PNEUMONIA [None]
